FAERS Safety Report 16177355 (Version 1)
Quarter: 2019Q2

REPORT INFORMATION
  Report Type: Spontaneous
  Country: FR (occurrence: FR)
  Receive Date: 20190410
  Receipt Date: 20190410
  Transmission Date: 20190711
  Serious: Yes (Other)
  Sender: FDA-Public Use
  Company Number: FR-ACCORD-119573

PATIENT
  Age: 37 Year
  Sex: Male

DRUGS (10)
  1. CYTARABINE/CYTARABINE HYDROCHLORIDE/CYTARABINE OCFOSFATE [Suspect]
     Active Substance: CYTARABINE
     Indication: HODGKIN^S DISEASE
     Route: 042
     Dates: start: 20180202, end: 201804
  2. BLEOMYCIN [Suspect]
     Active Substance: BLEOMYCIN SULFATE
     Indication: HODGKIN^S DISEASE
     Route: 042
     Dates: start: 20160705, end: 201611
  3. VINBLASTINE/VINBLASTINE SULFATE [Suspect]
     Active Substance: VINBLASTINE\VINBLASTINE SULFATE
     Indication: HODGKIN^S DISEASE
     Route: 042
     Dates: start: 20160705, end: 201611
  4. TOPALGIC [TRAMADOL HYDROCHLORIDE] [Concomitant]
     Active Substance: TRAMADOL HYDROCHLORIDE
  5. OXALIPLATIN. [Suspect]
     Active Substance: OXALIPLATIN
     Indication: HODGKIN^S DISEASE
     Route: 042
     Dates: start: 20180202, end: 201804
  6. ZELITREX [Concomitant]
     Active Substance: VALACYCLOVIR HYDROCHLORIDE
  7. DEXAMETHASONE. [Suspect]
     Active Substance: DEXAMETHASONE
     Indication: HODGKIN^S DISEASE
     Route: 042
     Dates: start: 20180202, end: 201804
  8. DOXORUBICIN [Suspect]
     Active Substance: DOXORUBICIN
     Indication: HODGKIN^S DISEASE
     Route: 042
     Dates: start: 20160705, end: 201611
  9. ZINNAT [Concomitant]
     Active Substance: CEFUROXIME AXETIL
  10. DACARBAZINE. [Suspect]
     Active Substance: DACARBAZINE
     Indication: HODGKIN^S DISEASE
     Route: 042
     Dates: start: 20160705, end: 201611

REACTIONS (2)
  - Ichthyosis [Recovering/Resolving]
  - Off label use [Unknown]

NARRATIVE: CASE EVENT DATE: 201804
